FAERS Safety Report 6903649-7 (Version None)
Quarter: 2010Q3

REPORT INFORMATION
  Report Type: 
  Country: None (occurrence: None)
  Receive Date: 20100803
  Receipt Date: 20081104
  Transmission Date: 20110219
  Serious: No
  Sender: FDA-Public Use
  Company Number: US-PFIZER INC-2008085665

PATIENT
  Sex: Female
  Weight: 66.22 kg

DRUGS (3)
  1. LYRICA [Suspect]
     Indication: PAIN
     Route: 048
     Dates: start: 20080713
  2. LEXAPRO [Concomitant]
     Indication: DEPRESSION
     Dosage: EVERY MORNING
     Dates: start: 20080715
  3. LEXAPRO [Concomitant]
     Indication: ANXIETY

REACTIONS (2)
  - INCREASED APPETITE [None]
  - WEIGHT INCREASED [None]
